FAERS Safety Report 5958926-3 (Version None)
Quarter: 2008Q4

REPORT INFORMATION
  Report Type: 
  Country: None (occurrence: None)
  Receive Date: 20081118
  Receipt Date: 20081105
  Transmission Date: 20090506
  Serious: Yes (Disabling)
  Sender: FDA-Public Use
  Company Number: 08-591

PATIENT
  Age: 47 Year
  Sex: Male
  Weight: 63.5036 kg

DRUGS (2)
  1. ALEVE [Suspect]
     Indication: BACK PAIN
     Dosage: 1320 MG, DAILY, ORAL 600 MG, DAILY, ORAL
     Route: 048
     Dates: start: 20080701, end: 20081014
  2. ALEVE [Suspect]
     Indication: BACK PAIN
     Dosage: 1320 MG, DAILY, ORAL 600 MG, DAILY, ORAL
     Route: 048
     Dates: start: 20081015, end: 20081021

REACTIONS (5)
  - DIZZINESS [None]
  - HEADACHE [None]
  - INCORRECT DOSE ADMINISTERED [None]
  - MONOPLEGIA [None]
  - TINNITUS [None]
